FAERS Safety Report 6107222-2 (Version None)
Quarter: 2009Q1

REPORT INFORMATION
  Report Type: 
  Country: None (occurrence: None)
  Receive Date: 20090309
  Receipt Date: 20090303
  Transmission Date: 20090719
  Serious: Yes (Death)
  Sender: FDA-Public Use
  Company Number: DE-WYE-G03240709

PATIENT
  Age: 54 Year
  Sex: Female

DRUGS (4)
  1. VENLAFAXINE HCL [Suspect]
     Indication: BIPOLAR DISORDER
     Route: 048
     Dates: start: 20081212, end: 20081214
  2. VENLAFAXINE HCL [Suspect]
     Indication: DEPRESSION
     Route: 048
     Dates: start: 20081215, end: 20081228
  3. ZYPREXA [Concomitant]
     Indication: BIPOLAR I DISORDER
     Route: 048
     Dates: start: 20081219, end: 20081228
  4. LORAZEPAM [Concomitant]
     Indication: BIPOLAR I DISORDER
     Route: 048
     Dates: start: 20081212, end: 20081218

REACTIONS (4)
  - COMPLETED SUICIDE [None]
  - CONDITION AGGRAVATED [None]
  - EMOTIONAL DISORDER [None]
  - RESTLESSNESS [None]
